FAERS Safety Report 10215643 (Version 2)
Quarter: 2014Q3

REPORT INFORMATION
  Report Type: Spontaneous
  Country: US (occurrence: US)
  Receive Date: 20140604
  Receipt Date: 20140709
  Transmission Date: 20150326
  Serious: Yes (Hospitalization, Other)
  Sender: FDA-Public Use
  Company Number: US-PFIZER INC-2014149868

PATIENT
  Age: 30 Year
  Sex: Female
  Weight: 70.3 kg

DRUGS (2)
  1. CHANTIX [Suspect]
     Active Substance: VARENICLINE TARTRATE
     Dosage: UNK
     Route: 048
     Dates: start: 201402, end: 2014
  2. CHANTIX [Suspect]
     Active Substance: VARENICLINE TARTRATE
     Indication: SMOKING CESSATION THERAPY
     Dosage: UNK
     Route: 048

REACTIONS (6)
  - Suicide attempt [Unknown]
  - Feeling abnormal [Unknown]
  - Memory impairment [Unknown]
  - Personality change [Unknown]
  - Loss of consciousness [Unknown]
  - Cardiac fibrillation [Unknown]

NARRATIVE: CASE EVENT DATE: 2014
